FAERS Safety Report 19919525 (Version 1)
Quarter: 2021Q4

REPORT INFORMATION
  Report Type: Report from Study
  Country: None (occurrence: BR)
  Receive Date: 20211004
  Receipt Date: 20211004
  Transmission Date: 20220303
  Serious: Yes (Other)
  Sender: FDA-Public Use
  Company Number: BR-ABBVIE-21K-020-4105089-00

PATIENT
  Age: 40 Year
  Sex: Female

DRUGS (1)
  1. RINVOQ [Suspect]
     Active Substance: UPADACITINIB
     Indication: Rheumatoid arthritis
     Dosage: UNSPECIFIED DOSE
     Route: 048
     Dates: start: 20210205

REACTIONS (1)
  - Procedural complication [Unknown]

NARRATIVE: CASE EVENT DATE: 20210930
